FAERS Safety Report 5029584-X (Version None)
Quarter: 2006Q2

REPORT INFORMATION
  Report Type: 
  Country: None (occurrence: None)
  Receive Date: 20060620
  Receipt Date: 20060609
  Transmission Date: 20061013
  Serious: Yes (Other)
  Sender: FDA-Public Use
  Company Number: PHNU2006DE02226

PATIENT
  Age: 51 Year
  Sex: Male

DRUGS (2)
  1. FLUPHENAZINE [Suspect]
     Route: 065
  2. CLOZAPINE [Suspect]
     Dosage: 50 MG, QHS
     Route: 048
     Dates: start: 19920101

REACTIONS (3)
  - DEPRESSION [None]
  - DRUG DEPENDENCE [None]
  - INITIAL INSOMNIA [None]
